FAERS Safety Report 6647152-0 (Version None)
Quarter: 2010Q1

REPORT INFORMATION
  Report Type: 
  Country: None (occurrence: None)
  Receive Date: 20100323
  Receipt Date: 20100312
  Transmission Date: 20100710
  Serious: Yes (Hospitalization)
  Sender: FDA-Public Use
  Company Number: PHHY2010MX15605

PATIENT
  Age: 57 Year
  Sex: Male

DRUGS (2)
  1. DIOVAN HCT [Suspect]
     Indication: HYPERTENSION
     Dosage: 1 TABLET (160/25 MG) PER DAY
     Dates: start: 20100201
  2. ANGIOTROFIN (DILTIAZEM) [Concomitant]
     Dosage: UNK

REACTIONS (1)
  - CARDIAC OPERATION [None]
